FAERS Safety Report 6150429-9 (Version None)
Quarter: 2009Q2

REPORT INFORMATION
  Report Type: 
  Country: None (occurrence: None)
  Receive Date: 20090409
  Receipt Date: 20090331
  Transmission Date: 20091009
  Serious: Yes (Other)
  Sender: FDA-Public Use
  Company Number: DE-ALLERGAN-0903925US

PATIENT
  Sex: Male

DRUGS (2)
  1. BOTOX [Suspect]
     Indication: MUSCLE SPASTICITY
     Dosage: 200 UNITS, UNK
     Dates: start: 20070601, end: 20070601
  2. BOTOX [Suspect]
     Dosage: 200 UNITS, UNK
     Dates: start: 20090301, end: 20090301

REACTIONS (2)
  - MOOD ALTERED [None]
  - SOMNOLENCE [None]
